FAERS Safety Report 13804687 (Version 1)
Quarter: 2017Q3

REPORT INFORMATION
  Report Type: Report from Study
  Country: KR (occurrence: KR)
  Receive Date: 20170728
  Receipt Date: 20170728
  Transmission Date: 20171127
  Serious: Yes (Death)
  Sender: FDA-Public Use
  Company Number: KR-ROCHE-1970827

PATIENT

DRUGS (2)
  1. IRINOTECAN [Suspect]
     Active Substance: IRINOTECAN
     Indication: COLORECTAL CANCER
     Dosage: AS A 90-MIN INFUSION ON DAY 1, EVERY 3 WEEKS
     Route: 042
  2. CAPECITABINE. [Suspect]
     Active Substance: CAPECITABINE
     Indication: COLORECTAL CANCER
     Dosage: AS AN INTERMITTENT REGIMEN OF 2 WEEKS OF TREATMENT FOLLOWED BY A 1-WEEK REST.
     Route: 048

REACTIONS (2)
  - Pneumonia [Fatal]
  - Septic shock [Fatal]
